FAERS Safety Report 25888169 (Version 2)
Quarter: 2025Q4

REPORT INFORMATION
  Report Type: Report from Study
  Country: US (occurrence: US)
  Receive Date: 20251007
  Receipt Date: 20251018
  Transmission Date: 20260118
  Serious: Yes (Other)
  Sender: ABBVIE
  Company Number: US-ABBVIE-6207693

PATIENT
  Sex: Male
  Weight: 81.192 kg

DRUGS (2)
  1. IMBRUVICA [Suspect]
     Active Substance: IBRUTINIB
     Indication: Chronic lymphocytic leukaemia
     Dosage: MISSED COUPLE OF DOSES, FORM STRENGTH: 420MG
     Route: 048
     Dates: start: 20220520
  2. IMBRUVICA [Suspect]
     Active Substance: IBRUTINIB
     Indication: Chronic lymphocytic leukaemia
     Dosage: FORM STRENGTH: 420MG
     Route: 048

REACTIONS (4)
  - Muscle rupture [Unknown]
  - SARS-CoV-2 antibody test positive [Unknown]
  - Pyrexia [Recovered/Resolved]
  - White blood cell count decreased [Unknown]
